FAERS Safety Report 11209738 (Version 2)
Quarter: 2016Q2

REPORT INFORMATION
  Report Type: Spontaneous
  Country: FR (occurrence: FR)
  Receive Date: 20150622
  Receipt Date: 20160601
  Transmission Date: 20160815
  Serious: Yes (Life-Threatening)
  Sender: FDA-Public Use
  Company Number: FR-FRESENIUS KABI-FK201500062

PATIENT
  Age: 53 Year
  Sex: Female

DRUGS (3)
  1. CELOCURINE [Suspect]
     Active Substance: SUCCINYLCHOLINE CHLORIDE
     Indication: INDUCTION OF ANAESTHESIA
     Route: 042
     Dates: start: 20141202, end: 20141202
  2. PROPOFOL 1% FRESENIUS [Suspect]
     Active Substance: PROPOFOL
     Indication: INDUCTION OF ANAESTHESIA
     Route: 042
     Dates: start: 20141202, end: 20141202
  3. SUFENTANIL MERCK [Suspect]
     Active Substance: SUFENTANIL
     Indication: INDUCTION OF ANAESTHESIA
     Route: 042
     Dates: start: 20141202, end: 20141202

REACTIONS (1)
  - Anaphylactic shock [Recovered/Resolved]

NARRATIVE: CASE EVENT DATE: 20141202
